FAERS Safety Report 7034100-7 (Version None)
Quarter: 2010Q4

REPORT INFORMATION
  Report Type: 
  Country: None (occurrence: None)
  Receive Date: 20101008
  Receipt Date: 20101001
  Transmission Date: 20110411
  Serious: Yes (Hospitalization, Other)
  Sender: FDA-Public Use
  Company Number: US-US-EMD SERONO, INC.-233291J10USA

PATIENT
  Sex: Female
  Weight: 80 kg

DRUGS (5)
  1. REBIF [Suspect]
     Indication: MULTIPLE SCLEROSIS
     Route: 058
     Dates: start: 20040402
  2. LYRICA [Concomitant]
     Indication: NEUROPATHY PERIPHERAL
  3. CYMBALTA [Concomitant]
     Indication: NEUROPATHY PERIPHERAL
  4. NEURONTIN [Concomitant]
     Indication: NEUROPATHY PERIPHERAL
  5. BENICAR [Concomitant]
     Indication: HYPERTENSION

REACTIONS (4)
  - DRUG ERUPTION [None]
  - NEUROPATHY PERIPHERAL [None]
  - OSTEOARTHRITIS [None]
  - OSTEONECROSIS [None]
